FAERS Safety Report 9193269 (Version 1)
Quarter: 2013Q1

REPORT INFORMATION
  Report Type: Spontaneous
  Country: US (occurrence: None)
  Receive Date: 20130325
  Receipt Date: 20130325
  Transmission Date: 20140127
  Serious: Yes (Life-Threatening)
  Sender: FDA-Public Use
  Company Number: None

PATIENT
  Age: 50 Year
  Sex: Male
  Weight: 97.52 kg

DRUGS (1)
  1. AMSULOSIN [Suspect]
     Indication: PROSTATOMEGALY
     Dosage: ONE NIGHT
     Dates: start: 20130323, end: 20130323

REACTIONS (5)
  - Dyspnoea [None]
  - Hallucination [None]
  - Hypopnoea [None]
  - Oxygen saturation decreased [None]
  - Refusal of treatment by patient [None]
